FAERS Safety Report 9196841 (Version 1)
Quarter: 2013Q1

REPORT INFORMATION
  Report Type: Spontaneous
  Country: US (occurrence: US)
  Receive Date: 20130328
  Receipt Date: 20130328
  Transmission Date: 20140127
  Serious: Yes (Other)
  Sender: FDA-Public Use
  Company Number: PHEH2013US006784

PATIENT
  Sex: Female

DRUGS (3)
  1. DIOVAN HCT [Suspect]
     Dosage: 1 DF (320 MG VALSA/ 12.5 MG HCT), QD
     Route: 048
  2. LEVOXYL [Suspect]
     Dosage: 0.088 UG, UNK
  3. METFORMIN [Concomitant]

REACTIONS (2)
  - Basal cell carcinoma [Unknown]
  - Diabetes mellitus [Unknown]
